FAERS Safety Report 8793405 (Version 1)
Quarter: 2012Q4

REPORT INFORMATION
  Report Type: 
  Country: TH (occurrence: TH)
  Receive Date: 20120918
  Receipt Date: 20120918
  Transmission Date: 20130627
  Serious: Yes (Other)
  Sender: FDA-Public Use
  Company Number: PHHY2012TH080153

PATIENT
  Sex: Female

DRUGS (2)
  1. GLIVEC [Suspect]
     Indication: CHRONIC MYELOID LEUKAEMIA
     Dosage: 400 mg, UNK
     Route: 048
     Dates: start: 20090727
  2. GLIVEC [Suspect]
     Dosage: 400 mg, UNK
     Dates: start: 20120825

REACTIONS (2)
  - Electrocardiogram QT prolonged [Recovering/Resolving]
  - Drug intolerance [Recovering/Resolving]
